FAERS Safety Report 26009293 (Version 1)
Quarter: 2025Q4

REPORT INFORMATION
  Report Type: Spontaneous
  Country: CH (occurrence: CH)
  Receive Date: 20251107
  Receipt Date: 20251107
  Transmission Date: 20260118
  Serious: Yes (Death, Life-Threatening, Hospitalization, Other)
  Sender: REGENERON
  Company Number: None

PATIENT
  Age: 77 Year
  Sex: Female

DRUGS (11)
  1. LIBTAYO [Suspect]
     Active Substance: CEMIPLIMAB-RWLC
     Indication: Vulval cancer
     Dosage: 350 MG, TOTAL
     Route: 042
     Dates: start: 20250210, end: 20250210
  2. LIBTAYO [Suspect]
     Active Substance: CEMIPLIMAB-RWLC
     Dosage: 350 MG, TOTAL
     Route: 042
     Dates: start: 20250324, end: 20250324
  3. LIBTAYO [Suspect]
     Active Substance: CEMIPLIMAB-RWLC
     Dosage: 350 MG, TOTAL
     Route: 042
     Dates: start: 20250303, end: 20250303
  4. LIBTAYO [Suspect]
     Active Substance: CEMIPLIMAB-RWLC
     Dosage: 350 MG, TOTAL
     Route: 042
     Dates: start: 20250414, end: 20250414
  5. LIBTAYO [Suspect]
     Active Substance: CEMIPLIMAB-RWLC
     Dosage: 350 MG, TOTAL
     Route: 042
     Dates: start: 20250502, end: 20250502
  6. LIBTAYO [Suspect]
     Active Substance: CEMIPLIMAB-RWLC
     Dosage: 350 MG, TOTAL
     Route: 042
     Dates: start: 20250523, end: 20250523
  7. LIBTAYO [Suspect]
     Active Substance: CEMIPLIMAB-RWLC
     Dosage: 350 MG, TOTAL
     Route: 042
     Dates: start: 20250616, end: 20250616
  8. LIBTAYO [Suspect]
     Active Substance: CEMIPLIMAB-RWLC
     Dosage: 350 MG, TOTAL
     Route: 042
     Dates: start: 20250707, end: 20250707
  9. AMLODIPINE/VALSARTAN/HCT [Concomitant]
     Dosage: UNK
  10. EUTHYROX [Concomitant]
     Active Substance: LEVOTHYROXINE SODIUM
     Dosage: UNK
  11. ROSUVASTATIN CALCIUM [Concomitant]
     Active Substance: ROSUVASTATIN CALCIUM
     Dosage: UNK

REACTIONS (1)
  - Autoimmune hepatitis [Fatal]

NARRATIVE: CASE EVENT DATE: 20250701
